FAERS Safety Report 8610248-8 (Version None)
Quarter: 2012Q3

REPORT INFORMATION
  Report Type: 
  Country: None (occurrence: None)
  Receive Date: 20120810
  Receipt Date: 20120810
  Transmission Date: 20120928
  Serious: Yes (Hospitalization)
  Sender: FDA-Public Use
  Company Number: None

PATIENT
  Sex: Female
  Weight: 68.49 kg

DRUGS (3)
  1. CYCLOPHOSPHAMIDE [Suspect]
     Dosage: 1040 MG
     Dates: start: 20120726
  2. DOXORUBICIN HYDROCHLORIDE [Suspect]
     Dosage: 105 MG
     Dates: start: 20120726
  3. PEGFILGRASTIM [Suspect]
     Dosage: 6 MG
     Dates: start: 20120727

REACTIONS (3)
  - WHITE BLOOD CELL COUNT DECREASED [None]
  - FEELING COLD [None]
  - FEBRILE NEUTROPENIA [None]
